FAERS Safety Report 25170585 (Version 1)
Quarter: 2025Q2

REPORT INFORMATION
  Report Type: Spontaneous
  Country: IN (occurrence: IN)
  Receive Date: 20250408
  Receipt Date: 20250408
  Transmission Date: 20250716
  Serious: Yes (Hospitalization)
  Sender: NOVO NORDISK
  Company Number: IN-NOVOPROD-1401401

PATIENT
  Sex: Male
  Weight: 54 kg

DRUGS (1)
  1. NOVORAPID [Suspect]
     Active Substance: INSULIN ASPART
     Indication: Product used for unknown indication

REACTIONS (8)
  - Liver disorder [Unknown]
  - Gallbladder disorder [Unknown]
  - Diabetes mellitus [Unknown]
  - Lower respiratory tract infection [Unknown]
  - Jaundice [Unknown]
  - Hypertension [Unknown]
  - Blood cholesterol increased [Unknown]
  - Nephrolithiasis [Unknown]
